FAERS Safety Report 9055289 (Version 3)
Quarter: 2013Q1

REPORT INFORMATION
  Report Type: Report from Study
  Country: CA (occurrence: CA)
  Receive Date: 20130206
  Receipt Date: 20130211
  Transmission Date: 20140127
  Serious: Yes (Other)
  Sender: FDA-Public Use
  Company Number: CA-ASTRAZENECA-2013SE07052

PATIENT
  Age: 61 Year
  Sex: Male

DRUGS (4)
  1. CAPRELSA [Suspect]
     Indication: THYROID CANCER
     Route: 048
     Dates: start: 20121207
  2. CAPRELSA [Suspect]
     Indication: THYROID CANCER
     Route: 048
     Dates: start: 20130103
  3. IMODIUM [Concomitant]
  4. VESICARE [Concomitant]

REACTIONS (1)
  - Hepatic enzyme increased [Not Recovered/Not Resolved]
